FAERS Safety Report 9166148 (Version 2)
Quarter: 2013Q3

REPORT INFORMATION
  Report Type: Report from Study
  Country: US (occurrence: US)
  Receive Date: 20130315
  Receipt Date: 20130827
  Transmission Date: 20140515
  Serious: Yes (Other)
  Sender: FDA-Public Use
  Company Number: US-ABBOTT-13P-163-1059891-00

PATIENT
  Age: 46 Year
  Sex: Female
  Weight: 72.64 kg

DRUGS (2)
  1. HUMIRA [Suspect]
     Indication: ANKYLOSING SPONDYLITIS
     Route: 058
     Dates: start: 20100329
  2. HUMIRA [Suspect]

REACTIONS (3)
  - Hypoaesthesia [Unknown]
  - Cerebrovascular accident [Unknown]
  - Staphylococcal infection [Unknown]
